FAERS Safety Report 5000037-8 (Version None)
Quarter: 2006Q2

REPORT INFORMATION
  Report Type: 
  Country: None (occurrence: None)
  Receive Date: 20060509
  Receipt Date: 20060503
  Transmission Date: 20061013
  Serious: Yes (Hospitalization)
  Sender: FDA-Public Use
  Company Number: 200610410BFR

PATIENT
  Age: 59 Year
  Sex: Male

DRUGS (8)
  1. SORAFENIB [Suspect]
     Indication: RENAL CELL CARCINOMA STAGE UNSPECIFIED
     Dosage: 400 MG, BID, ORAL
     Route: 048
     Dates: start: 20060307, end: 20060428
  2. SPASFON [Concomitant]
  3. BIPERIDYS [Concomitant]
  4. METEOSPASMYL [Concomitant]
  5. EFFERALGAN [Concomitant]
  6. DUPHALAC [Concomitant]
  7. IMOVANE [Concomitant]
  8. LEXOMIL [Concomitant]

REACTIONS (1)
  - PULMONARY EMBOLISM [None]
